FAERS Safety Report 20156094 (Version 2)
Quarter: 2021Q4

REPORT INFORMATION
  Report Type: Report from Study
  Country: IT (occurrence: IT)
  Receive Date: 20211207
  Receipt Date: 20211230
  Transmission Date: 20220303
  Serious: Yes (Other)
  Sender: FDA-Public Use
  Company Number: None

PATIENT
  Age: 3 Month
  Sex: Female

DRUGS (1)
  1. MENINGOCOCCAL GROUP B VACCINE [Suspect]
     Active Substance: MENINGOCOCCAL GROUP B VACCINE
     Indication: Prophylaxis
     Dosage: .5 ML
     Route: 030
     Dates: start: 20211109

REACTIONS (2)
  - Hyperpyrexia [Unknown]
  - Peripheral swelling [Unknown]
